FAERS Safety Report 9679046 (Version 2)
Quarter: 2015Q1

REPORT INFORMATION
  Report Type: Spontaneous
  Country: US (occurrence: None)
  Receive Date: 20131107
  Receipt Date: 20150318
  Transmission Date: 20150721
  Serious: Yes (Death, Other)
  Sender: FDA-Public Use
  Company Number: US-ZYDUS-002357

PATIENT
  Age: 43 Year
  Sex: Male

DRUGS (1)
  1. DONEPEZIL [Suspect]
     Active Substance: DONEPEZIL
     Indication: DEMENTIA
     Dosage: 10.00MG-1.0DAYS

REACTIONS (12)
  - Aphasia [None]
  - Executive dysfunction [None]
  - Affect lability [None]
  - Apraxia [None]
  - Atrophy [None]
  - Frontotemporal dementia [None]
  - Confusional state [None]
  - Apathy [None]
  - Perseveration [None]
  - Memory impairment [None]
  - Disinhibition [None]
  - Feeling drunk [None]
